FAERS Safety Report 17453623 (Version 4)
Quarter: 2021Q2

REPORT INFORMATION
  Report Type: Spontaneous
  Country: ES (occurrence: ES)
  Receive Date: 20200224
  Receipt Date: 20210618
  Transmission Date: 20210716
  Serious: Yes (Death, Other)
  Sender: FDA-Public Use
  Company Number: ES-GILEAD-2020-0452174

PATIENT
  Age: 70 Year
  Sex: Male

DRUGS (11)
  1. ACICLOVIR [Concomitant]
     Active Substance: ACYCLOVIR
  2. DELTIUS [Concomitant]
     Active Substance: CHOLECALCIFEROL
  3. BEMIPARIN [Concomitant]
     Active Substance: BEMIPARIN
  4. SEPTRIN [Concomitant]
     Active Substance: SULFAMETHOXAZOLE\TRIMETHOPRIM
  5. LEVOFLOXACIN. [Concomitant]
     Active Substance: LEVOFLOXACIN
  6. CYCLOPHOSPHAMIDE. [Concomitant]
     Active Substance: CYCLOPHOSPHAMIDE
     Indication: BONE MARROW CONDITIONING REGIMEN
     Dosage: 500 MG/M2
     Dates: start: 20191016, end: 20191018
  7. GEMOX [GEMCITABINE;OXALIPLATIN] [Concomitant]
     Active Substance: GEMCITABINE HYDROCHLORIDE\OXALIPLATIN
     Dosage: UNK
     Dates: start: 20190903
  8. YESCARTA [Suspect]
     Active Substance: AXICABTAGENE CILOLEUCEL
     Indication: DIFFUSE LARGE B-CELL LYMPHOMA
     Dosage: UNK
     Route: 042
     Dates: start: 20191024, end: 20191024
  9. TENOFOVIR [Concomitant]
     Active Substance: TENOFOVIR
  10. OMEPRAZOL [OMEPRAZOLE] [Concomitant]
     Active Substance: OMEPRAZOLE
  11. FLUDARABINE [Concomitant]
     Active Substance: FLUDARABINE PHOSPHATE
     Indication: BONE MARROW CONDITIONING REGIMEN
     Dosage: 30 MG/M2
     Dates: start: 20191016, end: 20191018

REACTIONS (4)
  - Troponin T increased [Unknown]
  - Brain natriuretic peptide increased [Unknown]
  - Cytokine release syndrome [Unknown]
  - Diffuse large B-cell lymphoma [Fatal]

NARRATIVE: CASE EVENT DATE: 20191030
